FAERS Safety Report 8404918-4 (Version None)
Quarter: 2012Q2

REPORT INFORMATION
  Report Type: 
  Country: None (occurrence: None)
  Receive Date: 20120601
  Receipt Date: 20110510
  Transmission Date: 20120825
  Serious: No
  Sender: FDA-Public Use
  Company Number: US-ASTRAZENECA-2011SE28095

PATIENT
  Age: 48 Year
  Sex: Female

DRUGS (1)
  1. ATACAND HCT [Suspect]
     Route: 048

REACTIONS (4)
  - DEHYDRATION [None]
  - HEADACHE [None]
  - HYPERTENSION [None]
  - POLLAKIURIA [None]
